FAERS Safety Report 10090069 (Version 1)
Quarter: 2014Q2

REPORT INFORMATION
  Report Type: Spontaneous
  Country: FR (occurrence: FR)
  Receive Date: 20140421
  Receipt Date: 20140421
  Transmission Date: 20141212
  Serious: Yes (Other)
  Sender: FDA-Public Use
  Company Number: FR-B.I. PHARMACEUTICALS,INC./RIDGEFIELD-2014-BI-17644FF

PATIENT
  Sex: Male

DRUGS (4)
  1. PRADAXA [Suspect]
     Indication: ATRIAL FIBRILLATION
     Dosage: 220 MG
     Route: 048
  2. DEPAKINE [Suspect]
     Indication: EPILEPSY
     Route: 065
     Dates: start: 2007
  3. FLECAINE [Concomitant]
     Indication: ATRIAL FIBRILLATION
     Route: 065
  4. HYPERIUM [Concomitant]
     Indication: HYPERTENSION
     Route: 065

REACTIONS (1)
  - Epilepsy [Not Recovered/Not Resolved]
